FAERS Safety Report 9159992 (Version 1)
Quarter: 2013Q1

REPORT INFORMATION
  Report Type: Spontaneous
  Country: FR (occurrence: FR)
  Receive Date: 20130313
  Receipt Date: 20130313
  Transmission Date: 20140127
  Serious: Yes (Death)
  Sender: FDA-Public Use
  Company Number: FR-ELI_LILLY_AND_COMPANY-FR201303001382

PATIENT
  Age: 77 Year
  Sex: Male

DRUGS (2)
  1. ALIMTA [Suspect]
     Dosage: 80 % DOSE
     Route: 042
  2. CARBOPLATIN [Concomitant]
     Dosage: 80 % DOSE

REACTIONS (2)
  - Febrile neutropenia [Fatal]
  - Off label use [Unknown]
